FAERS Safety Report 7251309-8 (Version None)
Quarter: 2011Q1

REPORT INFORMATION
  Report Type: 
  Country: None (occurrence: None)
  Receive Date: 20110119
  Receipt Date: 20110107
  Transmission Date: 20110831
  Serious: No
  Sender: FDA-Public Use
  Company Number: 023870

PATIENT
  Sex: Female

DRUGS (4)
  1. DIAMOX /00016901/ [Concomitant]
  2. LACOSAMIDE [Suspect]
     Dates: start: 20100922, end: 20101215
  3. DILANTIN [Concomitant]
  4. SYNTHROID [Concomitant]

REACTIONS (2)
  - BRADYCARDIA [None]
  - ELECTROCARDIOGRAM PR PROLONGATION [None]
